FAERS Safety Report 10227668 (Version 1)
Quarter: 2014Q2

REPORT INFORMATION
  Report Type: Spontaneous
  Country: US (occurrence: US)
  Receive Date: 20140610
  Receipt Date: 20140610
  Transmission Date: 20141212
  Serious: No
  Sender: FDA-Public Use
  Company Number: US-PFIZER INC-2014155829

PATIENT
  Age: 54 Year
  Sex: Female
  Weight: 61.22 kg

DRUGS (1)
  1. ADVIL [Suspect]
     Indication: HEADACHE
     Dosage: UNK, AS NEEDED
     Route: 048
     Dates: start: 20140528, end: 20140530

REACTIONS (2)
  - Blister [Unknown]
  - Product formulation issue [Unknown]
